FAERS Safety Report 17100202 (Version 1)
Quarter: 2019Q4

REPORT INFORMATION
  Report Type: Spontaneous
  Country: US (occurrence: US)
  Receive Date: 20191202
  Receipt Date: 20191202
  Transmission Date: 20200122
  Serious: No
  Sender: FDA-Public Use
  Company Number: US-ANTARES PHARMA, INC.-2018-SPO-MX-0467

PATIENT
  Age: 14 Year
  Sex: Male

DRUGS (2)
  1. OTREXUP [Suspect]
     Active Substance: METHOTREXATE
     Indication: CROHN^S DISEASE
     Dosage: 20 MG/0.4ML, QWK
     Route: 058
  2. OTREXUP [Suspect]
     Active Substance: METHOTREXATE
     Indication: OFF LABEL USE

REACTIONS (5)
  - Device deployment issue [Recovered/Resolved]
  - Off label use [Unknown]
  - Device issue [Recovered/Resolved]
  - Device issue [Recovered/Resolved]
  - Device deployment issue [Recovered/Resolved]

NARRATIVE: CASE EVENT DATE: 201807
